FAERS Safety Report 23406723 (Version 2)
Quarter: 2024Q1

REPORT INFORMATION
  Report Type: Spontaneous
  Country: ES (occurrence: ES)
  Receive Date: 20240116
  Receipt Date: 20240117
  Transmission Date: 20240410
  Serious: Yes (Other)
  Sender: FDA-Public Use
  Company Number: None

PATIENT
  Age: 75 Year
  Sex: Male

DRUGS (2)
  1. AVIBACTAM SODIUM\CEFTAZIDIME [Suspect]
     Active Substance: AVIBACTAM SODIUM\CEFTAZIDIME
     Indication: Respiratory tract infection
     Dosage: TIME INTERVAL: 0.33333333 DAYS: 1 DF, 3X/DAY (FREQ:8 H;1 VIAL EVERY 8 HOURS)
     Route: 042
     Dates: start: 20221219, end: 20230104
  2. FLUCONAZOL NORMON [Concomitant]
     Indication: Skin candida
     Dosage: 200 MG, EVERY 24 HOURS
     Route: 048
     Dates: start: 20221220, end: 20230104

REACTIONS (2)
  - Symmetrical drug-related intertriginous and flexural exanthema [Recovered/Resolved]
  - Rash maculo-papular [Recovered/Resolved]

NARRATIVE: CASE EVENT DATE: 20221220
